FAERS Safety Report 15633620 (Version 1)
Quarter: 2018Q4

REPORT INFORMATION
  Report Type: Spontaneous
  Country: US (occurrence: US)
  Receive Date: 20181119
  Receipt Date: 20181119
  Transmission Date: 20190205
  Serious: Yes (Hospitalization)
  Sender: FDA-Public Use
  Company Number: None

PATIENT
  Age: 80 Year
  Sex: Male

DRUGS (8)
  1. ASPIRIN. [Concomitant]
     Active Substance: ASPIRIN
  2. VENTOLIN HFA AER [Concomitant]
  3. METOPROLOL. [Concomitant]
     Active Substance: METOPROLOL
  4. ZOCOR [Concomitant]
     Active Substance: SIMVASTATIN
  5. CETIRIZINE [Concomitant]
     Active Substance: CETIRIZINE HYDROCHLORIDE
  6. CAPECITABINE. [Suspect]
     Active Substance: CAPECITABINE
     Indication: BLADDER CANCER
     Dosage: ?          OTHER FREQUENCY:BID ON DAYS 1-14;?
     Route: 048
     Dates: start: 20180809
  7. COUMADIN [Concomitant]
     Active Substance: WARFARIN SODIUM
  8. BREO ELLIPTA INH [Concomitant]

REACTIONS (2)
  - Abdominal wall wound [None]
  - Suture rupture [None]

NARRATIVE: CASE EVENT DATE: 20181012
